FAERS Safety Report 21119733 (Version 9)
Quarter: 2024Q2

REPORT INFORMATION
  Report Type: Report from Study
  Country: US (occurrence: US)
  Receive Date: 20220722
  Receipt Date: 20240617
  Transmission Date: 20240716
  Serious: No
  Sender: FDA-Public Use
  Company Number: US-NOVARTISTESTPH-NVSC2022US165781

PATIENT
  Sex: Female

DRUGS (2)
  1. COSENTYX [Suspect]
     Active Substance: SECUKINUMAB
     Indication: Product used for unknown indication
     Dosage: 300 MG, QMO
     Route: 065
  2. COSENTYX [Suspect]
     Active Substance: SECUKINUMAB
     Dosage: 2X 150MG
     Route: 065

REACTIONS (5)
  - Skin burning sensation [Unknown]
  - Foot fracture [Unknown]
  - Lower limb fracture [Unknown]
  - Device issue [Unknown]
  - Product temperature excursion issue [Unknown]
